FAERS Safety Report 16562143 (Version 2)
Quarter: 2019Q3

REPORT INFORMATION
  Report Type: Report from Study
  Country: US (occurrence: US)
  Receive Date: 20190711
  Receipt Date: 20190719
  Transmission Date: 20191004
  Serious: Yes (Hospitalization, Other)
  Sender: FDA-Public Use
  Company Number: US-ACTELION-A-NJ2019-189490

PATIENT
  Sex: Female

DRUGS (5)
  1. UPTRAVI [Suspect]
     Active Substance: SELEXIPAG
     Dosage: 1000 MCG, BID
     Route: 048
  2. UPTRAVI [Suspect]
     Active Substance: SELEXIPAG
     Indication: PULMONARY ARTERIAL HYPERTENSION
     Dosage: 800 MCG, BID
     Route: 048
  3. UPTRAVI [Suspect]
     Active Substance: SELEXIPAG
     Dosage: 600 MCG QAM, 800 MCG QPM
     Route: 048
  4. UPTRAVI [Suspect]
     Active Substance: SELEXIPAG
     Dosage: 600 MCG, BID
     Route: 048
     Dates: start: 201905
  5. RITUXAN [Concomitant]
     Active Substance: RITUXIMAB

REACTIONS (14)
  - Fluid retention [Unknown]
  - Haemophagocytic lymphohistiocytosis [Unknown]
  - Rash generalised [Unknown]
  - Diarrhoea [Unknown]
  - Still^s disease [Unknown]
  - Headache [Unknown]
  - Pituitary-dependent Cushing^s syndrome [Unknown]
  - Pyrexia [Unknown]
  - Hyperhidrosis [Unknown]
  - Pain [Recovered/Resolved]
  - Feeling hot [Unknown]
  - Vomiting [Unknown]
  - Laboratory test abnormal [Unknown]
  - Sinus disorder [Unknown]
